FAERS Safety Report 5965625-0 (Version None)
Quarter: 2008Q4

REPORT INFORMATION
  Report Type: 
  Country: None (occurrence: None)
  Receive Date: 20081121
  Receipt Date: 20081121
  Transmission Date: 20090506
  Serious: Yes (Other)
  Sender: FDA-Public Use
  Company Number: None

PATIENT
  Age: 2 Year
  Sex: Female
  Weight: 13.1543 kg

DRUGS (1)
  1. CEFDINIR [Suspect]
     Indication: PHARYNGITIS STREPTOCOCCAL
     Dosage: 125/5 ML 1 PER DAY PO
     Route: 048
     Dates: start: 20081115, end: 20081117

REACTIONS (3)
  - ASTHENIA [None]
  - FATIGUE [None]
  - RASH GENERALISED [None]
